FAERS Safety Report 7626242-X (Version None)
Quarter: 2011Q3

REPORT INFORMATION
  Report Type: 
  Country: None (occurrence: None)
  Receive Date: 20110721
  Receipt Date: 20110712
  Transmission Date: 20111222
  Serious: Yes (Other)
  Sender: FDA-Public Use
  Company Number: PHHY2011DE56937

PATIENT
  Sex: Female

DRUGS (1)
  1. GILENYA [Suspect]
     Indication: MULTIPLE SCLEROSIS
     Dosage: 0.5 MG, QD
     Route: 048
     Dates: start: 20110622, end: 20110626

REACTIONS (8)
  - VULVOVAGINAL MYCOTIC INFECTION [None]
  - DECREASED APPETITE [None]
  - TUNNEL VISION [None]
  - DERMATITIS ALLERGIC [None]
  - DIARRHOEA [None]
  - WEIGHT DECREASED [None]
  - RASH [None]
  - PRURITUS [None]
